FAERS Safety Report 4524798-7 (Version None)
Quarter: 2004Q4

REPORT INFORMATION
  Report Type: 
  Country: None (occurrence: None)
  Receive Date: 20041208
  Receipt Date: 20041129
  Transmission Date: 20050328
  Serious: Yes (Death, Hospitalization)
  Sender: FDA-Public Use
  Company Number: 2004S1000110

PATIENT
  Age: 80 Year
  Sex: Male
  Weight: 88.4514 kg

DRUGS (14)
  1. OXANDRIN [Suspect]
     Indication: MUSCLE DISORDER
     Dosage: 5 MG;QD;PO
     Route: 048
     Dates: start: 20020101, end: 20041105
  2. POTASSIUM [Concomitant]
  3. ATENOLOL [Concomitant]
  4. ALLOPURINOL [Concomitant]
  5. FUROSEMIDE [Concomitant]
  6. SIMVASTATIN [Concomitant]
  7. CLARITIN [Concomitant]
  8. ZAROXOLYN [Concomitant]
  9. AMICAR [Concomitant]
  10. ELAVIL [Concomitant]
  11. MAGNESIUM [Concomitant]
  12. ASPIRIN [Concomitant]
  13. THIAMINE [Concomitant]
  14. VITAPLEX [Concomitant]

REACTIONS (3)
  - HYPOGAMMAGLOBULINAEMIA [None]
  - PANCYTOPENIA [None]
  - PNEUMONIA [None]
